FAERS Safety Report 4394960-5 (Version None)
Quarter: 2004Q3

REPORT INFORMATION
  Report Type: 
  Country: None (occurrence: None)
  Receive Date: 20040712
  Receipt Date: 20040705
  Transmission Date: 20050211
  Serious: Yes (Other)
  Sender: FDA-Public Use
  Company Number: DE-GLAXOSMITHKLINE-D0044098A

PATIENT
  Age: 34 Year
  Sex: Female
  Weight: 55 kg

DRUGS (2)
  1. MALARONE [Suspect]
     Indication: MALARIA PROPHYLAXIS
     Dosage: 350MG PER DAY
     Route: 048
     Dates: start: 20030712, end: 20030803
  2. TRAMUNDIN [Concomitant]
     Dosage: 100MG TWICE PER DAY
     Route: 048

REACTIONS (5)
  - BED REST [None]
  - DIZZINESS [None]
  - MIGRAINE [None]
  - NAUSEA [None]
  - VOMITING [None]
